FAERS Safety Report 6504807-6 (Version None)
Quarter: 2009Q4

REPORT INFORMATION
  Report Type: 
  Country: None (occurrence: None)
  Receive Date: 20091215
  Receipt Date: 20091130
  Transmission Date: 20100525
  Serious: Yes (Hospitalization)
  Sender: FDA-Public Use
  Company Number: FLUOROURACIL-OCT-23

PATIENT
  Age: 57 Year
  Sex: Female

DRUGS (2)
  1. FLUOROURACIL [Suspect]
     Indication: ADENOCARCINOMA
     Dosage: 1 G/SQM
  2. CISPLATIN [Suspect]
     Indication: ADENOCARCINOMA
     Dosage: 75 MG/SQM

REACTIONS (12)
  - CONFUSIONAL STATE [None]
  - DECREASED APPETITE [None]
  - DISORIENTATION [None]
  - HAEMOGLOBIN DECREASED [None]
  - LETHARGY [None]
  - MALAISE [None]
  - NAUSEA [None]
  - RENAL IMPAIRMENT [None]
  - SNORING [None]
  - TARDIVE DYSKINESIA [None]
  - TREATMENT NONCOMPLIANCE [None]
  - URINARY INCONTINENCE [None]
